FAERS Safety Report 9908429 (Version 1)
Quarter: 2014Q1

REPORT INFORMATION
  Report Type: Spontaneous
  Country: US (occurrence: None)
  Receive Date: 20140211
  Receipt Date: 20140211
  Transmission Date: 20141002
  Serious: Yes (Death)
  Sender: FDA-Public Use
  Company Number: AUR-APL-2014-00999

PATIENT
  Age: 20 Year
  Sex: Male

DRUGS (8)
  1. LAMOTRIGINE (LAMOTRIGINE) [Suspect]
     Indication: PRODUCT USED FOR UNKNOWN INDICATION
  2. ZOLPIDEM (ZOLPIDEM) [Suspect]
     Indication: PRODUCT USED FOR UNKNOWN INDICATION
  3. BUPROPION (BUPROPION) [Suspect]
     Indication: PRODUCT USED FOR UNKNOWN INDICATION
     Route: 048
  4. ACETAMINOPHEN [Suspect]
     Indication: PRODUCT USED FOR UNKNOWN INDICATION
  5. SALICYLATE (SALICYLATES NOS) [Suspect]
     Indication: PRODUCT USED FOR UNKNOWN INDICATION
  6. CAFFEINE (CAFFEINE) [Suspect]
     Indication: PRODUCT USED FOR UNKNOWN INDICATION
  7. ARIPIPRAZOLE (ARIPIPRAZOLE) [Suspect]
     Indication: PRODUCT USED FOR UNKNOWN INDICATION
  8. CLONAZEPAM (CLONAZEPAM) (CLONAZEPAM) [Suspect]

REACTIONS (3)
  - Completed suicide [None]
  - Toxicity to various agents [None]
  - Exposure via ingestion [None]
